FAERS Safety Report 16738634 (Version 6)
Quarter: 2021Q1

REPORT INFORMATION
  Report Type: Report from Study
  Country: None (occurrence: JP)
  Receive Date: 20190826
  Receipt Date: 20210105
  Transmission Date: 20210419
  Serious: Yes (Hospitalization)
  Sender: FDA-Public Use
  Company Number: JP-ABBVIE-18K-087-2284183-00

PATIENT
  Age: 78 Year
  Sex: Male
  Weight: 63 kg

DRUGS (6)
  1. ROTIGOTINE [Concomitant]
     Active Substance: ROTIGOTINE
     Indication: PARKINSON^S DISEASE
     Route: 062
  2. DUODOPA [Suspect]
     Active Substance: CARBIDOPA\LEVODOPA
     Dosage: 3.0 ML
     Route: 050
  3. DUODOPA [Suspect]
     Active Substance: CARBIDOPA\LEVODOPA
     Dosage: MD: 9 ML CD: 1.5 ML/HR X 16 HRS
     Route: 050
     Dates: start: 20180124
  4. DUODOPA [Suspect]
     Active Substance: CARBIDOPA\LEVODOPA
     Indication: PARKINSON^S DISEASE
     Route: 050
     Dates: start: 201701
  5. DUODOPA [Suspect]
     Active Substance: CARBIDOPA\LEVODOPA
     Dosage: 2.5 ML
     Route: 050
  6. CARBIDOPA HYDRATE?LEVODOPA MIXTURE [Concomitant]
     Indication: PARKINSON^S DISEASE
     Route: 048

REACTIONS (16)
  - Malaise [Recovering/Resolving]
  - Drug ineffective [Unknown]
  - Electroencephalogram abnormal [Unknown]
  - Pyelonephritis [Unknown]
  - Gait inability [Unknown]
  - Parkinsonian gait [Unknown]
  - Erythema [Unknown]
  - On and off phenomenon [Unknown]
  - General physical health deterioration [Unknown]
  - Parkinson^s disease [Unknown]
  - Therapeutic reaction time decreased [Recovered/Resolved]
  - Insomnia [Unknown]
  - Hypokinesia [Recovering/Resolving]
  - Musculoskeletal stiffness [Unknown]
  - Device dislocation [Unknown]
  - Hypersomnia [Unknown]

NARRATIVE: CASE EVENT DATE: 2018
